FAERS Safety Report 25941441 (Version 2)
Quarter: 2025Q4

REPORT INFORMATION
  Report Type: Spontaneous
  Country: US (occurrence: US)
  Receive Date: 20251020
  Receipt Date: 20251030
  Transmission Date: 20260118
  Serious: No
  Sender: MYLAN
  Company Number: US-MYLANLABS-2025M1078385

PATIENT
  Sex: Female

DRUGS (1)
  1. EPINEPHRINE [Suspect]
     Active Substance: EPINEPHRINE
     Indication: Allergy to arthropod sting
     Dosage: UNK
     Dates: start: 20250911, end: 20250911

REACTIONS (2)
  - Product dose omission issue [Unknown]
  - Product colour issue [Unknown]

NARRATIVE: CASE EVENT DATE: 20250911
